FAERS Safety Report 24428722 (Version 2)
Quarter: 2024Q4

REPORT INFORMATION
  Report Type: Spontaneous
  Country: ES (occurrence: ES)
  Receive Date: 20241011
  Receipt Date: 20241022
  Transmission Date: 20250115
  Serious: Yes (Other)
  Sender: NOVARTIS
  Company Number: ES-002147023-NVSC2024ES199180

PATIENT
  Age: 1 Year
  Sex: Female

DRUGS (5)
  1. ZOLGENSMA [Suspect]
     Active Substance: ONASEMNOGENE ABEPARVOVEC-XIOI
     Indication: Spinal muscular atrophy
     Dosage: UNK, ONCE/SINGLE (CONCENTRATION OF 2?10 TO THE 13TH POWER VECTOR GENOMES (VG): 8.8 X 10 TO THE 14TH
     Route: 042
     Dates: start: 202405, end: 202405
  2. PREDNISOLONE [Concomitant]
     Active Substance: PREDNISOLONE
     Indication: Product used for unknown indication
     Dosage: UNK, QD (1 MG/KG )
     Route: 048
     Dates: start: 20240522, end: 20240829
  3. OMEPRAZOLE [Concomitant]
     Active Substance: OMEPRAZOLE
     Indication: Product used for unknown indication
     Dosage: 5 MG
     Route: 065
  4. ENALAPRIL [Concomitant]
     Active Substance: ENALAPRIL
     Indication: Product used for unknown indication
     Dosage: 0.3 MG, Q24H
     Route: 065
     Dates: start: 20240724
  5. Glutaferro [Concomitant]
     Indication: Product used for unknown indication
     Dosage: UNK, QD (30 MG/KG)
     Route: 048
     Dates: start: 202406

REACTIONS (5)
  - Pathological fracture [Unknown]
  - Hypertransaminasaemia [Not Recovered/Not Resolved]
  - Growth failure [Unknown]
  - Osteoporosis [Unknown]
  - Decreased appetite [Not Recovered/Not Resolved]

NARRATIVE: CASE EVENT DATE: 20240522
